FAERS Safety Report 16196998 (Version 1)
Quarter: 2019Q2

REPORT INFORMATION
  Report Type: Spontaneous
  Country: US (occurrence: US)
  Receive Date: 20190311
  Receipt Date: 20190311
  Transmission Date: 20190711
  Serious: No
  Sender: FDA-Public Use
  Company Number: None

PATIENT
  Age: 26 Year
  Sex: Male

DRUGS (1)
  1. SYMDEKO [Suspect]
     Active Substance: IVACAFTOR\TEZACAFTOR
     Indication: LYMPHOMA
     Dates: start: 201903

REACTIONS (3)
  - Nausea [None]
  - Drug interaction [None]
  - Headache [None]

NARRATIVE: CASE EVENT DATE: 20190311
